FAERS Safety Report 7693314-3 (Version None)
Quarter: 2011Q3

REPORT INFORMATION
  Report Type: 
  Country: None (occurrence: None)
  Receive Date: 20110819
  Receipt Date: 20110816
  Transmission Date: 20111222
  Serious: Yes (Death)
  Sender: FDA-Public Use
  Company Number: PHHY2010CA68010

PATIENT
  Sex: Female

DRUGS (2)
  1. ZOMETA [Suspect]
     Dosage: 3 MG, EVERY 6 WEEKS
     Route: 042
  2. ZOMETA [Suspect]
     Indication: URETHRAL CANCER METASTATIC
     Dosage: 3 MG, EVERY 4 WEEKS
     Route: 042
     Dates: start: 20100831

REACTIONS (12)
  - DRUG ADMINISTRATION ERROR [None]
  - RADIATION ASSOCIATED PAIN [None]
  - NECK PAIN [None]
  - HAEMOGLOBIN DECREASED [None]
  - PLATELET COUNT INCREASED [None]
  - BLOOD CALCIUM DECREASED [None]
  - HEART RATE INCREASED [None]
  - DEATH [None]
  - WHITE BLOOD CELL COUNT DECREASED [None]
  - MEAN CELL HAEMOGLOBIN DECREASED [None]
  - LYMPHOCYTE COUNT DECREASED [None]
  - HAEMATOCRIT DECREASED [None]
